FAERS Safety Report 19709852 (Version 1)
Quarter: 2021Q3

REPORT INFORMATION
  Report Type: Spontaneous
  Country: NL (occurrence: NL)
  Receive Date: 20210817
  Receipt Date: 20210817
  Transmission Date: 20211014
  Serious: Yes (Other)
  Sender: FDA-Public Use
  Company Number: NL-TEVA-2021-NL-1942156

PATIENT
  Age: 62 Year
  Sex: Male
  Weight: 83 kg

DRUGS (4)
  1. PANTOPRAZOL TABLET MSR 40MG / BRAND NAME NOT SPECIFIED [Concomitant]
     Active Substance: PANTOPRAZOLE
     Dosage: THERAPY START DATE ASKU, THERAPY END DATE ASKU, 40 MG
  2. ACETYLSALICYLZUUR TABLET  80MG / BRAND NAME NOT SPECIFIED [Concomitant]
     Active Substance: ASPIRIN
     Dosage: THERAPY START DATE ASKU, THERAPY END DATE ASKU, 80 MG
  3. METOPROLOL TABLET MGA  50MG (SUCCINAAT) / BRAND NAME NOT SPECIFIED [Suspect]
     Active Substance: METOPROLOL SUCCINATE
     Indication: ANGINA PECTORIS
     Dosage: 1 DOSAGE FORMS DAILY; THERAPY END DATE ASKU
     Route: 065
     Dates: start: 20210429
  4. ATORVASTATINE TABLET 40MG / BRAND NAME NOT SPECIFIED [Concomitant]
     Active Substance: ATORVASTATIN
     Dosage: THERAPY START DATE ASKU, THERAPY END DATE ASKU, 40 MG

REACTIONS (1)
  - Atrial fibrillation [Recovered/Resolved]

NARRATIVE: CASE EVENT DATE: 20210522
